FAERS Safety Report 12170412 (Version 2)
Quarter: 2017Q4

REPORT INFORMATION
  Report Type: Spontaneous
  Country: TW (occurrence: TW)
  Receive Date: 20160311
  Receipt Date: 20171018
  Transmission Date: 20180320
  Serious: Yes (Other)
  Sender: FDA-Public Use
  Company Number: TW-ACCORD-038715

PATIENT
  Age: 45 Year
  Sex: Male

DRUGS (12)
  1. CLOBETASOL PROPIONATE .05 % [Concomitant]
     Indication: IMMUNOSUPPRESSANT DRUG THERAPY
     Dosage: RECEIVED TOPICALLY, AS MAINTENANCE THERAPY FOR IMMUNOSUPPRESSION.
     Route: 061
  2. NYSTATIN/NYSTATIN/LIPOSOME [Concomitant]
     Indication: ANTIFUNGAL PROPHYLAXIS
     Route: 048
  3. SULFAMETHOXAZOLE/TRIMETHOPRIM [Concomitant]
     Indication: ANTIFUNGAL PROPHYLAXIS
  4. SOLU-MEDROL [Concomitant]
     Active Substance: METHYLPREDNISOLONE SODIUM SUCCINATE
     Indication: IMMUNOSUPPRESSANT DRUG THERAPY
  5. MYCOPHENOLIC ACID. [Suspect]
     Active Substance: MYCOPHENOLIC ACID
     Indication: IMMUNOSUPPRESSANT DRUG THERAPY
     Dosage: RECEIVED SYSTEMICALLY, AS MAINTENANCE THERAPY FOR IMMUNOSUPPRESSION.
  6. TACROLIMUS. [Suspect]
     Active Substance: TACROLIMUS
     Indication: IMMUNOSUPPRESSANT DRUG THERAPY
     Dosage: RECEIVED AS SYSTEMIC AND TOPICAL TACROLIMUS AS MAINTENANCE THERAPY FOR IMMUNOSUPPRESSION.
     Route: 061
  7. PROTOPIC [Suspect]
     Active Substance: TACROLIMUS
     Indication: IMMUNOSUPPRESSANT DRUG THERAPY
     Route: 061
  8. PROGRAF [Suspect]
     Active Substance: TACROLIMUS\TACROLIMUS ANHYDROUS
     Indication: IMMUNOSUPPRESSANT DRUG THERAPY
  9. VALGANCICLOVIR/VALGANCICLOVIR HYDROCHLORIDE [Concomitant]
     Indication: ANTIVIRAL PROPHYLAXIS
     Route: 048
  10. SERTACONAZOLE [Concomitant]
     Active Substance: SERTACONAZOLE
     Indication: FOLLICULITIS
     Route: 061
  11. HERBESSER [Concomitant]
     Active Substance: DILTIAZEM HYDROCHLORIDE
  12. PREDNISONE. [Suspect]
     Active Substance: PREDNISONE
     Indication: IMMUNOSUPPRESSANT DRUG THERAPY
     Dosage: RECEIVED SYSTEMICALLY, AS MAINTENANCE THERAPY FOR IMMUNOSUPPRESSION.

REACTIONS (4)
  - Cellulitis [Recovering/Resolving]
  - Leukopenia [Unknown]
  - Lymphadenopathy [Recovering/Resolving]
  - Cytomegalovirus infection [Recovering/Resolving]
